FAERS Safety Report 11212018 (Version 1)
Quarter: 2015Q2

REPORT INFORMATION
  Report Type: Spontaneous
  Country: DE (occurrence: DE)
  Receive Date: 20150623
  Receipt Date: 20150623
  Transmission Date: 20150821
  Serious: Yes (Hospitalization)
  Sender: FDA-Public Use
  Company Number: DE-PFIZER INC-2015205660

PATIENT
  Age: 39 Year
  Sex: Female

DRUGS (1)
  1. ZIPRASIDON PFIZER [Suspect]
     Active Substance: ZIPRASIDONE HYDROCHLORIDE
     Dosage: UNK
     Dates: start: 2012

REACTIONS (3)
  - Aphasia [Unknown]
  - Memory impairment [Unknown]
  - Skin discolouration [Unknown]

NARRATIVE: CASE EVENT DATE: 2014
